FAERS Safety Report 9299526 (Version 1)
Quarter: 2013Q2

REPORT INFORMATION
  Report Type: Spontaneous
  Country: US (occurrence: US)
  Receive Date: 20130521
  Receipt Date: 20130521
  Transmission Date: 20140414
  Serious: Yes (Other)
  Sender: FDA-Public Use
  Company Number: US-ROCHE-1224064

PATIENT
  Sex: Male

DRUGS (2)
  1. ACCUTANE [Suspect]
     Indication: ACNE
     Route: 065
  2. AMNESTEEM [Suspect]
     Indication: ACNE
     Route: 065

REACTIONS (5)
  - Depression [Unknown]
  - Gastrointestinal injury [Unknown]
  - Alopecia [Unknown]
  - Rash [Unknown]
  - Skin lesion [Unknown]
